FAERS Safety Report 9914378 (Version 1)
Quarter: 2014Q1

REPORT INFORMATION
  Report Type: Spontaneous
  Country: AU (occurrence: AU)
  Receive Date: 20140220
  Receipt Date: 20140220
  Transmission Date: 20141002
  Serious: Yes (Life-Threatening, Other)
  Sender: FDA-Public Use
  Company Number: AU-MERCK-1402AUS008721

PATIENT
  Age: 47 Year
  Sex: Male

DRUGS (3)
  1. RIBAVIRIN [Suspect]
     Indication: HEPATIC CIRRHOSIS
     Dosage: UNK
     Route: 048
  2. PEGATRON [Suspect]
     Indication: HEPATIC CIRRHOSIS
     Dosage: UNK
     Route: 058
  3. TELAPREVIR [Suspect]
     Indication: HEPATIC CIRRHOSIS
     Dosage: 1125 MG, BID
     Route: 048
     Dates: start: 20130827, end: 201311

REACTIONS (2)
  - Pneumonia streptococcal [Recovered/Resolved]
  - Convulsion [Recovered/Resolved]
